FAERS Safety Report 6926401-5 (Version None)
Quarter: 2010Q3

REPORT INFORMATION
  Report Type: 
  Country: None (occurrence: None)
  Receive Date: 20100816
  Receipt Date: 20100816
  Transmission Date: 20110219
  Serious: Yes (Hospitalization)
  Sender: FDA-Public Use
  Company Number: None

PATIENT
  Sex: Female
  Weight: 90.9 kg

DRUGS (4)
  1. RITUXIMAB (MOAB C2B8 ANTI CD20, CHIMERIC) [Suspect]
     Dosage: 1600 MG
  2. CYCLOPHOSPHAMIDE [Suspect]
     Dosage: 1200 MG
  3. PENTOSTATIN [Suspect]
     Dosage: 8 MG
  4. PEGFILGRASTIM [Concomitant]

REACTIONS (6)
  - CHEST DISCOMFORT [None]
  - DRUG HYPERSENSITIVITY [None]
  - DYSPNOEA [None]
  - PALPITATIONS [None]
  - PULMONARY OEDEMA [None]
  - RESTRICTIVE PULMONARY DISEASE [None]
